FAERS Safety Report 12502468 (Version 4)
Quarter: 2016Q3

REPORT INFORMATION
  Report Type: Spontaneous
  Country: US (occurrence: US)
  Receive Date: 20160627
  Receipt Date: 20160905
  Transmission Date: 20161109
  Serious: Yes (Other)
  Sender: FDA-Public Use
  Company Number: US-TEVA-669972USA

PATIENT
  Age: 20 Year
  Sex: Female

DRUGS (2)
  1. ZECUITY [Suspect]
     Active Substance: SUMATRIPTAN SUCCINATE
     Indication: HEADACHE
     Route: 062
     Dates: start: 20160608, end: 20160608
  2. TOPIRAMATE. [Concomitant]
     Active Substance: TOPIRAMATE

REACTIONS (8)
  - Application site scar [Not Recovered/Not Resolved]
  - Drug ineffective [Unknown]
  - Application site paraesthesia [Recovered/Resolved]
  - Application site discolouration [Not Recovered/Not Resolved]
  - Application site pain [Not Recovered/Not Resolved]
  - Application site erythema [Not Recovered/Not Resolved]
  - Application site swelling [Not Recovered/Not Resolved]
  - Discomfort [Not Recovered/Not Resolved]

NARRATIVE: CASE EVENT DATE: 20160608
